FAERS Safety Report 11434643 (Version 1)
Quarter: 2015Q3

REPORT INFORMATION
  Report Type: Spontaneous
  Country: US (occurrence: None)
  Receive Date: 20150828
  Receipt Date: 20150828
  Transmission Date: 20151125
  Serious: Yes (Hospitalization, Other)
  Sender: FDA-Public Use
  Company Number: None

PATIENT
  Age: 10 Year
  Sex: Female
  Weight: 52.4 kg

DRUGS (29)
  1. AMLODIPINE [Concomitant]
     Active Substance: AMLODIPINE BESYLATE
  2. DUCUSATE [Concomitant]
  3. ONDANSETRON [Concomitant]
     Active Substance: ONDANSETRON
  4. ERYTHROPOETIN ALFA [Concomitant]
  5. CYCLOPHOSPHAMIDE. [Suspect]
     Active Substance: CYCLOPHOSPHAMIDE
     Indication: PROTEINURIA
     Route: 042
     Dates: start: 20150821
  6. HEPARIN (SUBCUT, DVT PROPHYLAXIS) [Concomitant]
  7. TRAMADOL. [Concomitant]
     Active Substance: TRAMADOL
  8. ^MAGIC MOUTHWASH^ WITH MGOH [Concomitant]
  9. MAALOX-PLUS [Concomitant]
  10. ERGOCALCIFEROL. [Concomitant]
     Active Substance: ERGOCALCIFEROL
  11. ACETAMINOPHEN. [Concomitant]
     Active Substance: ACETAMINOPHEN
  12. CARVEDILOL. [Concomitant]
     Active Substance: CARVEDILOL
  13. NYSTATIN. [Concomitant]
     Active Substance: NYSTATIN
  14. CYCLOPHOSPHAMIDE. [Suspect]
     Active Substance: CYCLOPHOSPHAMIDE
     Indication: GLOMERULONEPHRITIS MEMBRANOPROLIFERATIVE
     Route: 042
     Dates: start: 20150821
  15. PANTOPRAZOLE [Concomitant]
     Active Substance: PANTOPRAZOLE SODIUM
  16. FUROSEMIDE. [Concomitant]
     Active Substance: FUROSEMIDE
  17. PEG 3350 [Concomitant]
     Active Substance: POLYETHYLENE GLYCOL 3350
  18. MAGNESIUM OXIDE. [Concomitant]
     Active Substance: MAGNESIUM OXIDE
  19. FAMOTIDINE. [Concomitant]
     Active Substance: FAMOTIDINE
  20. VALSARTAN. [Concomitant]
     Active Substance: VALSARTAN
  21. FOLIC ACID. [Concomitant]
     Active Substance: FOLIC ACID
  22. SENNA [Concomitant]
     Active Substance: SENNA LEAF\SENNOSIDES\SENNOSIDES A AND B
  23. DIPHENHYDRAMINE. [Concomitant]
     Active Substance: DIPHENHYDRAMINE
  24. ALBUTEROL. [Concomitant]
     Active Substance: ALBUTEROL
  25. OXYCODONE [Concomitant]
     Active Substance: OXYCODONE
  26. CEVIMELINE. [Concomitant]
     Active Substance: CEVIMELINE
  27. ESOMEPRAZOLE [Concomitant]
     Active Substance: ESOMEPRAZOLE
  28. SIMETHICONE (DIMETHICONE) [Concomitant]
     Active Substance: DIMETHICONE
  29. LIDOCAINE. [Concomitant]
     Active Substance: LIDOCAINE

REACTIONS (2)
  - Cystitis haemorrhagic [None]
  - Haematuria [None]

NARRATIVE: CASE EVENT DATE: 20150824
